FAERS Safety Report 6933385-2 (Version None)
Quarter: 2010Q3

REPORT INFORMATION
  Report Type: 
  Country: None (occurrence: None)
  Receive Date: 20100820
  Receipt Date: 20100809
  Transmission Date: 20110219
  Serious: Yes (Other)
  Sender: FDA-Public Use
  Company Number: CA-JNJFOC-20100202608

PATIENT
  Sex: Female
  Weight: 77.11 kg

DRUGS (5)
  1. REMICADE [Suspect]
     Indication: COLITIS ULCERATIVE
     Route: 042
  2. METHOTREXATE [Concomitant]
     Indication: COLITIS ULCERATIVE
  3. METHOTREXATE [Concomitant]
  4. DULCOLAX [Concomitant]
     Indication: COLITIS ULCERATIVE
     Route: 048
  5. EFFEXOR [Concomitant]
     Indication: HOT FLUSH
     Route: 048

REACTIONS (3)
  - HEADACHE [None]
  - NAUSEA [None]
  - SURGERY [None]
